FAERS Safety Report 5822247-X (Version None)
Quarter: 2008Q3

REPORT INFORMATION
  Report Type: 
  Country: None (occurrence: None)
  Receive Date: 20080722
  Receipt Date: 20080703
  Transmission Date: 20090109
  Serious: No
  Sender: FDA-Public Use
  Company Number: 8034591

PATIENT
  Age: 14 Year
  Sex: Male

DRUGS (2)
  1. EQUASYM [Suspect]
     Indication: ATTENTION DEFICIT/HYPERACTIVITY DISORDER
     Dosage: 10 MG 2 /D
     Dates: start: 20070515
  2. MEDIKINET [Concomitant]

REACTIONS (4)
  - APATHY [None]
  - CRYING [None]
  - FATIGUE [None]
  - TIC [None]
